FAERS Safety Report 4843761-X (Version None)
Quarter: 2005Q4

REPORT INFORMATION
  Report Type: 
  Country: None (occurrence: None)
  Receive Date: 20051129
  Receipt Date: 20051118
  Transmission Date: 20060501
  Serious: Yes (Other)
  Sender: FDA-Public Use
  Company Number: 200513992GDS

PATIENT
  Age: 82 Year
  Sex: Female

DRUGS (8)
  1. AVELOX [Suspect]
     Dosage: 400 MG, QD, ORAL
     Route: 048
  2. ALDACTONE [Concomitant]
  3. ATIVAN [Concomitant]
  4. BISOPROLOL [Concomitant]
  5. LASIX [Concomitant]
  6. PAROXETINE HCL [Concomitant]
  7. TRAZODONE HCL [Concomitant]
  8. WARFARIN SODIUM [Concomitant]

REACTIONS (9)
  - DELIRIUM [None]
  - HEPATITIS [None]
  - MUSCLE SPASMS [None]
  - MYOCLONUS [None]
  - NAUSEA [None]
  - OLIGURIA [None]
  - RENAL FAILURE [None]
  - RHABDOMYOLYSIS [None]
  - VOMITING [None]
